FAERS Safety Report 12342849 (Version 1)
Quarter: 2016Q2

REPORT INFORMATION
  Report Type: Spontaneous
  Country: AT (occurrence: AT)
  Receive Date: 20160506
  Receipt Date: 20160506
  Transmission Date: 20160815
  Serious: Yes (Life-Threatening, Hospitalization, Other)
  Sender: FDA-Public Use
  Company Number: AT-ABBVIE-16P-009-1621703-00

PATIENT
  Age: 63 Year
  Sex: Male

DRUGS (8)
  1. DUODOPA [Suspect]
     Active Substance: CARBIDOPA\LEVODOPA
     Indication: DOPAMINE DYSREGULATION SYNDROME
     Dosage: MD: 6.8 ML;CR: 2.5 ML/H;ED: 1.5 ML  8AM-10PM
     Route: 050
     Dates: end: 20160502
  2. SINEMET [Concomitant]
     Active Substance: CARBIDOPA\LEVODOPA
     Indication: PRODUCT USED FOR UNKNOWN INDICATION
     Dosage: FORM STRENGTH: 25/100 MG UNIT DOSE: 12.5/50 MG
  3. DUODOPA [Suspect]
     Active Substance: CARBIDOPA\LEVODOPA
     Indication: PARKINSON^S DISEASE
     Dosage: 16 H THERAPY:MD: 8.7 ML; CR: 2.7 ML/H; ED: 1.5 ML (3H LOCK)
     Route: 050
     Dates: start: 20100315
  4. EFFORTIL [Concomitant]
     Active Substance: ETILEFRINE HYDROCHLORIDE
     Indication: HYPOTENSION
  5. LEPONEX [Concomitant]
     Active Substance: CLOZAPINE
     Indication: NIGHTMARE
  6. LEPONEX [Concomitant]
     Active Substance: CLOZAPINE
     Indication: PROPHYLAXIS
  7. DUODOPA [Suspect]
     Active Substance: CARBIDOPA\LEVODOPA
     Dosage: MD: 6.8 ML;CR: 2.7 ML/H;ED: 1.5 ML 16 HOUR THERAPY
     Route: 050
     Dates: start: 20160503
  8. LEPONEX [Concomitant]
     Active Substance: CLOZAPINE
     Indication: HALLUCINATION

REACTIONS (27)
  - Speech disorder [Unknown]
  - Agitation [Unknown]
  - Hallucination [Unknown]
  - Memory impairment [Unknown]
  - Hypoaesthesia [Unknown]
  - Stoma site hypergranulation [Unknown]
  - Weight decreased [Unknown]
  - Epilepsy [Unknown]
  - Atonic seizures [Unknown]
  - Pulse abnormal [Unknown]
  - Masked facies [Unknown]
  - Hypotension [Unknown]
  - Dyskinesia [Unknown]
  - Stoma site erythema [Unknown]
  - Movement disorder [Unknown]
  - Posture abnormal [Unknown]
  - Syncope [Unknown]
  - Polyneuropathy [Unknown]
  - Muscle rigidity [Unknown]
  - Gait disturbance [Unknown]
  - Loss of consciousness [Unknown]
  - Mood altered [Unknown]
  - Action tremor [Unknown]
  - Bradykinesia [Unknown]
  - Skin maceration [Unknown]
  - Depression [Unknown]
  - Carotid artery stenosis [Unknown]

NARRATIVE: CASE EVENT DATE: 20160503
